FAERS Safety Report 19031294 (Version 1)
Quarter: 2021Q1

REPORT INFORMATION
  Report Type: Spontaneous
  Country: US (occurrence: US)
  Receive Date: 20210318
  Receipt Date: 20210318
  Transmission Date: 20210420
  Serious: Yes (Hospitalization)
  Sender: FDA-Public Use
  Company Number: None

PATIENT
  Age: 50 Year
  Sex: Male
  Weight: 72.7 kg

DRUGS (11)
  1. STELARA [Suspect]
     Active Substance: USTEKINUMAB
  2. TPN INFUSION QHS [Concomitant]
  3. PHENYTOIN. [Concomitant]
     Active Substance: PHENYTOIN
  4. STELARA [Concomitant]
     Active Substance: USTEKINUMAB
     Dosage: ?          OTHER FREQUENCY:EVERY 8 WEEKS ;?
     Route: 011
     Dates: end: 20190213
  5. DICYCLOMINE [Concomitant]
     Active Substance: DICYCLOMINE HYDROCHLORIDE
  6. ERGOVALCIFEROL [Concomitant]
  7. FAMOTIDINE. [Concomitant]
     Active Substance: FAMOTIDINE
  8. PREDNISONE. [Concomitant]
     Active Substance: PREDNISONE
     Dosage: ?          OTHER DOSE:5?10 MG;?
  9. RIVAROXABAN [Concomitant]
     Active Substance: RIVAROXABAN
  10. POTASSIUM CHLORIDE. [Concomitant]
     Active Substance: POTASSIUM CHLORIDE
  11. RIFAXIMIN. [Concomitant]
     Active Substance: RIFAXIMIN

REACTIONS (7)
  - Chills [None]
  - Decreased appetite [None]
  - Septic shock [None]
  - Pyrexia [None]
  - Fatigue [None]
  - Device related sepsis [None]
  - Myalgia [None]

NARRATIVE: CASE EVENT DATE: 20190315
